FAERS Safety Report 18467131 (Version 1)
Quarter: 2020Q4

REPORT INFORMATION
  Report Type: Spontaneous
  Country: US (occurrence: US)
  Receive Date: 20201104
  Receipt Date: 20201104
  Transmission Date: 20210114
  Serious: No
  Sender: FDA-Public Use
  Company Number: None

PATIENT
  Age: 75 Year
  Sex: Male
  Weight: 62 kg

DRUGS (2)
  1. ATORVASTATIN (ATORVASTATIN CA 80MG TAB) [Suspect]
     Active Substance: ATORVASTATIN
     Route: 048
     Dates: start: 20200420, end: 20200821
  2. PRAVASTATIN (PRAVASTATIN NA 20MG TAB) [Suspect]
     Active Substance: PRAVASTATIN SODIUM
     Route: 048
     Dates: start: 20180630, end: 20200830

REACTIONS (2)
  - Hepatic enzyme increased [None]
  - Hepatitis [None]

NARRATIVE: CASE EVENT DATE: 20200820
